FAERS Safety Report 8794802 (Version 2)
Quarter: 2012Q4

REPORT INFORMATION
  Report Type: 
  Country: US (occurrence: US)
  Receive Date: 20120917
  Receipt Date: 20120926
  Transmission Date: 20130627
  Serious: Yes (Other)
  Sender: FDA-Public Use
  Company Number: CHPA2012US019806

PATIENT
  Age: 85 Year
  Sex: Female
  Weight: 52.15 kg

DRUGS (7)
  1. VOLTAREN GEL [Suspect]
     Indication: PLANTAR FASCIITIS
     Dosage: Unk, Unk
     Route: 061
     Dates: start: 201108, end: 201208
  2. THYROID THERAPY [Suspect]
     Dosage: 50 to 75mg, Unk
  3. VITAMIN D [Concomitant]
  4. CENTRUM SILVER [Concomitant]
  5. CALCIUM [Concomitant]
  6. CLONAZEPAM [Concomitant]
  7. VESICARE [Concomitant]

REACTIONS (14)
  - Thyroid disorder [Not Recovered/Not Resolved]
  - Malaise [Not Recovered/Not Resolved]
  - Bradyphrenia [Not Recovered/Not Resolved]
  - Urinary incontinence [Not Recovered/Not Resolved]
  - Urethral disorder [Not Recovered/Not Resolved]
  - Eye injury [Not Recovered/Not Resolved]
  - Dry eye [Recovered/Resolved]
  - Eye irritation [Recovered/Resolved]
  - Pain in extremity [Recovered/Resolved]
  - Weight decreased [Not Recovered/Not Resolved]
  - Eye pain [Not Recovered/Not Resolved]
  - Blood cholesterol increased [Not Recovered/Not Resolved]
  - Headache [Unknown]
  - Off label use [Unknown]
